FAERS Safety Report 5129138-0 (Version None)
Quarter: 2006Q4

REPORT INFORMATION
  Report Type: 
  Country: None (occurrence: None)
  Receive Date: 20061011
  Receipt Date: 20060925
  Transmission Date: 20070319
  Serious: Yes (Death)
  Sender: FDA-Public Use
  Company Number: JP200604001101

PATIENT
  Age: 77 Year
  Sex: Male
  Weight: 57 kg

DRUGS (10)
  1. GEMZAR [Suspect]
     Indication: LUNG ADENOCARCINOMA STAGE IV
     Dosage: 1600 MG, OTHER, INTRAVENOUS
     Route: 042
     Dates: start: 20060403, end: 20060403
  2. PARAPLATIN [Concomitant]
  3. MAGNESIUM OXIDE (MAGNESIUM OXIDE) [Concomitant]
  4. LOXONIN           (LOXOPROFEN SODIUM) [Concomitant]
  5. FAMOTIDINE [Concomitant]
  6. BROCIN-CODEINE              (CODEINE PHOSPHATE, WILD CHERRY BARK) [Concomitant]
  7. METHYLPREDNISOLONE [Concomitant]
  8. ROCEPHIN [Concomitant]
  9. SOLDEM 3A [Concomitant]
  10. MORPHINE [Concomitant]

REACTIONS (16)
  - ALANINE AMINOTRANSFERASE INCREASED [None]
  - ASPARTATE AMINOTRANSFERASE INCREASED [None]
  - BEDRIDDEN [None]
  - BLOOD CREATINE INCREASED [None]
  - BLOOD UREA INCREASED [None]
  - CARDIAC FAILURE [None]
  - CARDIO-RESPIRATORY ARREST [None]
  - HYPERKALAEMIA [None]
  - LIVER DISORDER [None]
  - LUNG ADENOCARCINOMA [None]
  - MALAISE [None]
  - MALIGNANT NEOPLASM PROGRESSION [None]
  - METABOLIC ACIDOSIS [None]
  - PERFORMANCE STATUS DECREASED [None]
  - RENAL DISORDER [None]
  - SPUTUM RETENTION [None]
